FAERS Safety Report 6124941-2 (Version None)
Quarter: 2009Q1

REPORT INFORMATION
  Report Type: 
  Country: None (occurrence: None)
  Receive Date: 20090319
  Receipt Date: 20090313
  Transmission Date: 20090719
  Serious: No
  Sender: FDA-Public Use
  Company Number: US-B.I. PHARMACEUTICALS,INC./RIDGEFIELD-2009-BP-03154BP

PATIENT
  Sex: Female

DRUGS (1)
  1. AGGRENOX [Suspect]
     Indication: CEREBROVASCULAR ACCIDENT
     Dates: start: 20090101

REACTIONS (7)
  - ADVERSE DRUG REACTION [None]
  - ATRIAL FIBRILLATION [None]
  - HEADACHE [None]
  - HEART RATE INCREASED [None]
  - HYPERSENSITIVITY [None]
  - NAUSEA [None]
  - PRESYNCOPE [None]
